FAERS Safety Report 8135672 (Version 3)
Quarter: 2013Q2

REPORT INFORMATION
  Report Type: Spontaneous
  Country: GB (occurrence: GB)
  Receive Date: 20110914
  Receipt Date: 20130515
  Transmission Date: 20140414
  Serious: Yes (Other)
  Sender: FDA-Public Use
  Company Number: GB-PFIZER INC-2010142472

PATIENT
  Sex: Female
  Weight: 3.44 kg

DRUGS (4)
  1. LYRICA [Suspect]
     Indication: PAIN IN EXTREMITY
     Dosage: 100 MG, 3X/DAY
     Route: 064
     Dates: start: 20100303, end: 20101104
  2. LYRICA [Suspect]
     Indication: ARNOLD-CHIARI MALFORMATION
  3. FOLIC ACID [Concomitant]
     Indication: PREGNANCY
     Dosage: 400 MG, 1X/DAY
     Route: 064
     Dates: start: 20101104
  4. FERROUS SULPHATE [Concomitant]
     Indication: IRON DEFICIENCY
     Dosage: 200 MG, UNK
     Route: 064
     Dates: start: 20100722

REACTIONS (2)
  - Exposure during pregnancy [Unknown]
  - Cardiac murmur functional [Recovered/Resolved]
